FAERS Safety Report 8179257-X (Version None)
Quarter: 2012Q1

REPORT INFORMATION
  Report Type: 
  Country: None (occurrence: None)
  Receive Date: 20120227
  Receipt Date: 20120217
  Transmission Date: 20120608
  Serious: Yes (Hospitalization)
  Sender: FDA-Public Use
  Company Number: AUR-APL-2010-01341

PATIENT
  Age: 2 Month
  Sex: Male

DRUGS (3)
  1. PREVENAR 13 (PNEUMOCOCCAL VACCINE) [Suspect]
     Indication: IMMUNISATION
     Dosage: 1 DOSAGE FORMS UNKNOWN
     Dates: start: 20100416
  2. CEFTRIAXONE [Suspect]
     Indication: PRODUCT USED FOR UNKNOWN INDICATION
     Dosage: UNKNOWN
     Dates: start: 20100101
  3. AMOXICILLIN [Suspect]
     Indication: PRODUCT USED FOR UNKNOWN INDICATION
     Dosage: UNKNOWN
     Dates: start: 20100101

REACTIONS (6)
  - DIARRHOEA [None]
  - FREQUENT BOWEL MOVEMENTS [None]
  - MUCOUS STOOLS [None]
  - HAEMATOCHEZIA [None]
  - COLITIS [None]
  - CONDITION AGGRAVATED [None]
